FAERS Safety Report 25145555 (Version 4)
Quarter: 2025Q2

REPORT INFORMATION
  Report Type: Spontaneous
  Country: US (occurrence: US)
  Receive Date: 20250401
  Receipt Date: 20250516
  Transmission Date: 20250717
  Serious: No
  Sender: PFIZER
  Company Number: US-PFIZER INC-202500064637

PATIENT
  Age: 12 Year
  Sex: Male
  Weight: 45.805 kg

DRUGS (2)
  1. GENOTROPIN [Suspect]
     Active Substance: SOMATROPIN
     Dosage: 1.8 MG PER DAY, 7 DAYS PER WEEK
     Route: 058
  2. GENOTROPIN [Suspect]
     Active Substance: SOMATROPIN
     Dosage: 2 MG, DAILY
     Route: 058

REACTIONS (2)
  - Device leakage [Unknown]
  - Device issue [Unknown]
